FAERS Safety Report 8581825 (Version 3)
Quarter: 2012Q4

REPORT INFORMATION
  Report Type: 
  Country: US (occurrence: US)
  Receive Date: 20120528
  Receipt Date: 20121206
  Transmission Date: 20130627
  Serious: Yes (Hospitalization)
  Sender: FDA-Public Use
  Company Number: US-BIOGENIDEC-2012BI017763

PATIENT
  Age: 61 None
  Sex: Female

DRUGS (4)
  1. AVONEX [Suspect]
     Indication: MULTIPLE SCLEROSIS
     Route: 030
     Dates: start: 20010330, end: 200308
  2. AVONEX [Suspect]
     Indication: MULTIPLE SCLEROSIS
     Route: 030
     Dates: start: 200308
  3. AMPYRA [Concomitant]
     Indication: GAIT DISTURBANCE
     Dates: start: 2012, end: 2012
  4. ZANTAC [Concomitant]
     Indication: GASTROOESOPHAGEAL REFLUX DISEASE

REACTIONS (13)
  - Hypertension [Recovered/Resolved]
  - Flatulence [Recovered/Resolved]
  - Blood pressure increased [Recovered/Resolved]
  - Stent placement [Recovered/Resolved]
  - Arterial occlusive disease [Recovered/Resolved]
  - Chest pain [Recovered/Resolved]
  - Musculoskeletal chest pain [Recovered/Resolved]
  - Pain in extremity [Recovered/Resolved]
  - Tooth extraction [Recovered/Resolved]
  - Breast oedema [Recovered/Resolved]
  - Vision blurred [Recovered/Resolved]
  - Tooth abscess [Recovered/Resolved]
  - Dental caries [Not Recovered/Not Resolved]
